FAERS Safety Report 7948619-5 (Version None)
Quarter: 2011Q4

REPORT INFORMATION
  Report Type: 
  Country: None (occurrence: None)
  Receive Date: 20111130
  Receipt Date: 20111118
  Transmission Date: 20120403
  Serious: Yes (Other)
  Sender: FDA-Public Use
  Company Number: US-ASTRAZENECA-2011SE27173

PATIENT
  Age: 73 Year
  Sex: Female

DRUGS (1)
  1. NEXIUM [Suspect]
     Route: 048

REACTIONS (18)
  - APHAGIA [None]
  - DYSPEPSIA [None]
  - BLOOD PRESSURE SYSTOLIC INCREASED [None]
  - DIARRHOEA [None]
  - LOSS OF CONSCIOUSNESS [None]
  - EPISTAXIS [None]
  - WEIGHT DECREASED [None]
  - INSOMNIA [None]
  - CARDIAC FAILURE [None]
  - BLOOD PRESSURE DIASTOLIC DECREASED [None]
  - HAEMATEMESIS [None]
  - DRUG DOSE OMISSION [None]
  - GASTRIC HAEMORRHAGE [None]
  - RECTAL HAEMORRHAGE [None]
  - HAEMORRHAGE [None]
  - ADVERSE EVENT [None]
  - CARDIAC DISCOMFORT [None]
  - PNEUMONIA [None]
